FAERS Safety Report 17889192 (Version 1)
Quarter: 2020Q2

REPORT INFORMATION
  Report Type: Spontaneous
  Country: US (occurrence: US)
  Receive Date: 20200612
  Receipt Date: 20200612
  Transmission Date: 20200714
  Serious: No
  Sender: FDA-Public Use
  Company Number: US-HIKMA PHARMACEUTICALS USA INC.-US-H14001-19-03463

PATIENT
  Age: 63 Year
  Sex: Female
  Weight: 72.56 kg

DRUGS (4)
  1. FLUTICASONE PROPIONATE. [Suspect]
     Active Substance: FLUTICASONE PROPIONATE
     Indication: LOWER RESPIRATORY TRACT CONGESTION
     Dosage: 50 MCG IN EACH NOSTRIL, SINGLE
     Route: 045
     Dates: start: 20190426, end: 20190426
  2. FLUTICASONE PROPIONATE. [Suspect]
     Active Substance: FLUTICASONE PROPIONATE
     Indication: COUGH
     Dosage: 50 MCG IN EACH NOSTRIL, SINGLE
     Route: 045
     Dates: start: 20190425, end: 20190425
  3. FLUTICASONE PROPIONATE. [Suspect]
     Active Substance: FLUTICASONE PROPIONATE
     Indication: INNER EAR INFLAMMATION
  4. FLUTICASONE PROPIONATE. [Suspect]
     Active Substance: FLUTICASONE PROPIONATE
     Indication: EAR CONGESTION

REACTIONS (3)
  - Anxiety [Recovered/Resolved]
  - Nausea [Recovered/Resolved]
  - Off label use [Unknown]
